FAERS Safety Report 21963023 (Version 1)
Quarter: 2023Q1

REPORT INFORMATION
  Report Type: Spontaneous
  Country: BR (occurrence: BR)
  Receive Date: 20230207
  Receipt Date: 20230207
  Transmission Date: 20230417
  Serious: Yes (Other)
  Sender: FDA-Public Use
  Company Number: BR-ORGANON-O2302BRA000205

PATIENT
  Sex: Female

DRUGS (1)
  1. ETONOGESTREL [Suspect]
     Active Substance: ETONOGESTREL
     Indication: Contraception
     Dosage: 1 IMPLANT (ON THE LEFT ARM)
     Route: 059
     Dates: start: 20220714

REACTIONS (1)
  - Blood loss anaemia [Unknown]

NARRATIVE: CASE EVENT DATE: 20221001
